FAERS Safety Report 24392878 (Version 2)
Quarter: 2025Q2

REPORT INFORMATION
  Report Type: Spontaneous
  Country: CN (occurrence: CN)
  Receive Date: 20241003
  Receipt Date: 20250608
  Transmission Date: 20250716
  Serious: Yes (Hospitalization)
  Sender: COHERUS
  Company Number: CN-SHANGHAI JUNSHI BIOSCIENCES CO., LTD.-CN2024011449

PATIENT

DRUGS (9)
  1. TORIPALIMAB [Suspect]
     Active Substance: TORIPALIMAB
     Indication: Invasive breast carcinoma
     Route: 041
     Dates: start: 20240722, end: 20240813
  2. TORIPALIMAB [Suspect]
     Active Substance: TORIPALIMAB
     Indication: Lymphoma
     Route: 041
     Dates: start: 20240904
  3. TORIPALIMAB [Suspect]
     Active Substance: TORIPALIMAB
     Indication: Breast cancer recurrent
  4. PACLITAXEL [Suspect]
     Active Substance: PACLITAXEL
     Indication: Invasive breast carcinoma
     Route: 041
     Dates: start: 20240813, end: 20240813
  5. PACLITAXEL [Suspect]
     Active Substance: PACLITAXEL
     Indication: Lymphoma
     Route: 041
     Dates: start: 20240905, end: 20240905
  6. PACLITAXEL [Suspect]
     Active Substance: PACLITAXEL
     Indication: Breast cancer recurrent
  7. CAPECITABINE [Concomitant]
     Active Substance: CAPECITABINE
     Indication: Invasive breast carcinoma
     Dosage: UNK, Q3WEEKS
     Route: 048
     Dates: start: 202405
  8. CAPECITABINE [Concomitant]
     Active Substance: CAPECITABINE
     Indication: Lymphoma
  9. CAPECITABINE [Concomitant]
     Active Substance: CAPECITABINE
     Indication: Breast cancer recurrent

REACTIONS (1)
  - Myelosuppression [Recovering/Resolving]

NARRATIVE: CASE EVENT DATE: 20240813
